FAERS Safety Report 5866139-9 (Version None)
Quarter: 2008Q3

REPORT INFORMATION
  Report Type: 
  Country: None (occurrence: None)
  Receive Date: 20080829
  Receipt Date: 20080825
  Transmission Date: 20090109
  Serious: Yes (Other)
  Sender: FDA-Public Use
  Company Number: US-GENENTECH-266949

PATIENT
  Sex: Female

DRUGS (17)
  1. XOLAIR [Suspect]
     Indication: ASTHMA
     Dosage: 300 MG, Q4W
     Route: 058
  2. ASPIRIN [Concomitant]
     Indication: DRUG USE FOR UNKNOWN INDICATION
  3. BONIVA [Concomitant]
     Indication: DRUG USE FOR UNKNOWN INDICATION
  4. COLACE [Concomitant]
     Indication: DRUG USE FOR UNKNOWN INDICATION
  5. COMBIVENT [Concomitant]
     Indication: DRUG USE FOR UNKNOWN INDICATION
  6. DUONEB [Concomitant]
     Indication: DRUG USE FOR UNKNOWN INDICATION
  7. ISOSORBIDE [Concomitant]
     Indication: DRUG USE FOR UNKNOWN INDICATION
  8. POTASSIUM CHLORIDE [Concomitant]
     Indication: DRUG USE FOR UNKNOWN INDICATION
  9. LASIX [Concomitant]
     Indication: DRUG USE FOR UNKNOWN INDICATION
  10. LIPITOR [Concomitant]
     Indication: DRUG USE FOR UNKNOWN INDICATION
  11. LISINOPRIL [Concomitant]
     Indication: DRUG USE FOR UNKNOWN INDICATION
  12. NITROGLYCERIN [Concomitant]
     Indication: DRUG USE FOR UNKNOWN INDICATION
  13. OMNICEF [Concomitant]
     Indication: DRUG USE FOR UNKNOWN INDICATION
  14. PLAVIX [Concomitant]
     Indication: DRUG USE FOR UNKNOWN INDICATION
  15. PREDNISONE TAB [Concomitant]
     Indication: DRUG USE FOR UNKNOWN INDICATION
  16. SINGULAIR [Concomitant]
     Indication: DRUG USE FOR UNKNOWN INDICATION
  17. ULTRAM [Concomitant]
     Indication: DRUG USE FOR UNKNOWN INDICATION

REACTIONS (1)
  - BRONCHITIS [None]
